FAERS Safety Report 5441903-9 (Version None)
Quarter: 2007Q3

REPORT INFORMATION
  Report Type: 
  Country: None (occurrence: None)
  Receive Date: 20070830
  Receipt Date: 20070830
  Transmission Date: 20080115
  Serious: No
  Sender: FDA-Public Use
  Company Number: None

PATIENT
  Sex: Male
  Weight: 99.5 kg

DRUGS (1)
  1. FLUOROURACIL [Suspect]
     Dosage: 5600 MG
     Dates: end: 20070806

REACTIONS (4)
  - IMPLANT SITE INFECTION [None]
  - OPEN WOUND [None]
  - PURULENT DISCHARGE [None]
  - URINARY TRACT INFECTION [None]
